FAERS Safety Report 12753028 (Version 3)
Quarter: 2016Q4

REPORT INFORMATION
  Report Type: Spontaneous
  Country: US (occurrence: US)
  Receive Date: 20160915
  Receipt Date: 20161017
  Transmission Date: 20170207
  Serious: Yes (Hospitalization)
  Sender: FDA-Public Use
  Company Number: US-ASTELLAS-2016US030481

PATIENT
  Sex: Male

DRUGS (1)
  1. XTANDI [Suspect]
     Active Substance: ENZALUTAMIDE
     Indication: PROSTATE CANCER
     Route: 048
     Dates: start: 20160719

REACTIONS (5)
  - Cancer pain [Not Recovered/Not Resolved]
  - Bone pain [Unknown]
  - Fatigue [Unknown]
  - Pain [Unknown]
  - Asthenia [Unknown]
